FAERS Safety Report 17812922 (Version 1)
Quarter: 2020Q2

REPORT INFORMATION
  Report Type: Spontaneous
  Country: US (occurrence: US)
  Receive Date: 20200521
  Receipt Date: 20200521
  Transmission Date: 20200714
  Serious: No
  Sender: FDA-Public Use
  Company Number: US-ASTRAZENECA-2020SE65688

PATIENT
  Sex: Female

DRUGS (12)
  1. LOSARTAN POTASSIUM. [Concomitant]
     Active Substance: LOSARTAN POTASSIUM
  2. VENEFLEXIN [Concomitant]
  3. OXYCODONE [Concomitant]
     Active Substance: OXYCODONE
  4. LUNESTA [Concomitant]
     Active Substance: ESZOPICLONE
  5. CARISOPRODOL. [Concomitant]
     Active Substance: CARISOPRODOL
  6. VENTOLIN [Concomitant]
     Active Substance: ALBUTEROL SULFATE
     Indication: ASTHMA
     Dosage: UNKNOWN
  7. ROPINEROLE HCL [Concomitant]
  8. PULMICORT FLEXHALER [Suspect]
     Active Substance: BUDESONIDE
     Indication: BRONCHIAL HYPERREACTIVITY
     Route: 055
  9. PANTAPROZOLE SODIUM EC [Concomitant]
     Indication: GASTROOESOPHAGEAL REFLUX DISEASE
  10. ALEVE [Concomitant]
     Active Substance: NAPROXEN SODIUM
  11. GABAPENTIN. [Concomitant]
     Active Substance: GABAPENTIN
  12. ZOFRAN [Concomitant]
     Active Substance: ONDANSETRON HYDROCHLORIDE
     Dosage: AS REQUIRED

REACTIONS (3)
  - Anxiety [Not Recovered/Not Resolved]
  - Back pain [Not Recovered/Not Resolved]
  - Dyspnoea [Not Recovered/Not Resolved]
